FAERS Safety Report 14110797 (Version 1)
Quarter: 2017Q4

REPORT INFORMATION
  Report Type: Spontaneous
  Country: US (occurrence: US)
  Receive Date: 20171020
  Receipt Date: 20171020
  Transmission Date: 20180321
  Serious: Yes (Other)
  Sender: FDA-Public Use
  Company Number: US-REGENERON PHARMACEUTICALS, INC.-2017-24169

PATIENT

DRUGS (4)
  1. EYLEA [Suspect]
     Active Substance: AFLIBERCEPT
     Indication: AGE-RELATED MACULAR DEGENERATION
     Dosage: 2 MG, EVERY 8 WEEKS, RIGHT EYE
     Route: 031
     Dates: start: 20150327, end: 20170707
  2. EYLEA [Suspect]
     Active Substance: AFLIBERCEPT
     Dosage: 2 MG, EVERY 8 WEEKS, LAST DOSE,  LEFT EYE
     Route: 031
     Dates: start: 20170828, end: 20170828
  3. EYLEA [Suspect]
     Active Substance: AFLIBERCEPT
     Dosage: 2 MG, EVERY 8 WEEKS,  LEFT EYE
     Route: 031
     Dates: start: 20151202
  4. EYLEA [Suspect]
     Active Substance: AFLIBERCEPT
     Dosage: 2 MG, EVERY 8 WEEKS, LAST DOSE, RIGHT EYE
     Route: 031
     Dates: start: 20170707, end: 20170707

REACTIONS (7)
  - Vitreous haze [Not Recovered/Not Resolved]
  - Vitreous floaters [Not Recovered/Not Resolved]
  - Vision blurred [Recovered/Resolved]
  - Eye inflammation [Recovered/Resolved]
  - Vitreous haze [Recovered/Resolved]
  - Vision blurred [Not Recovered/Not Resolved]
  - Eye inflammation [Recovered/Resolved]

NARRATIVE: CASE EVENT DATE: 20170710
